FAERS Safety Report 5637341-6 (Version None)
Quarter: 2008Q1

REPORT INFORMATION
  Report Type: 
  Country: None (occurrence: None)
  Receive Date: 20080219
  Receipt Date: 20080204
  Transmission Date: 20080703
  Serious: Yes (Other)
  Sender: FDA-Public Use
  Company Number: CHPA2008US02523

PATIENT
  Age: 38 Year
  Sex: Female

DRUGS (1)
  1. NICOTINE [Suspect]
     Dosage: 5 DF, QD, BUCCAL
     Route: 002

REACTIONS (3)
  - DRUG DEPENDENCE [None]
  - INTENTIONAL DRUG MISUSE [None]
  - SELF-MEDICATION [None]
